FAERS Safety Report 9263278 (Version 1)
Quarter: 2013Q2

REPORT INFORMATION
  Report Type: Spontaneous
  Country: US (occurrence: US)
  Receive Date: 20130429
  Receipt Date: 20130429
  Transmission Date: 20140414
  Serious: Yes (Hospitalization)
  Sender: FDA-Public Use
  Company Number: US-RB-3196-2006

PATIENT
  Sex: Female
  Weight: 65 kg

DRUGS (1)
  1. SUBUTEX [Suspect]
     Indication: DRUG DEPENDENCE
     Dosage: PATIENT TAKES 3 1/2 TABLETS OF 8 MG.
     Route: 060

REACTIONS (2)
  - Exposure during pregnancy [Recovered/Resolved]
  - Hospitalisation [Unknown]
